FAERS Safety Report 24008413 (Version 1)
Quarter: 2024Q2

REPORT INFORMATION
  Report Type: Spontaneous
  Country: GB (occurrence: GB)
  Receive Date: 20240625
  Receipt Date: 20240625
  Transmission Date: 20240716
  Serious: Yes (Other)
  Sender: FDA-Public Use
  Company Number: None

PATIENT
  Sex: Female

DRUGS (1)
  1. KEPPRA [Suspect]
     Active Substance: LEVETIRACETAM
     Indication: Epilepsy
     Dosage: UNK
     Dates: start: 20240415, end: 20240531

REACTIONS (5)
  - Suicidal ideation [Unknown]
  - Anger [Unknown]
  - Anxiety [Unknown]
  - Social avoidant behaviour [Unknown]
  - Personality change [Unknown]
